FAERS Safety Report 10051385 (Version 2)
Quarter: 2014Q2

REPORT INFORMATION
  Report Type: Report from Study
  Country: US (occurrence: US)
  Receive Date: 20140401
  Receipt Date: 20140423
  Transmission Date: 20141212
  Serious: Yes (Hospitalization)
  Sender: FDA-Public Use
  Company Number: US-ABBVIE-14K-163-1215831-00

PATIENT
  Age: 58 Year
  Sex: Female

DRUGS (14)
  1. HUMIRA [Suspect]
     Indication: PSORIASIS
     Dates: start: 20140102, end: 20140102
  2. HUMIRA [Suspect]
     Dates: start: 20140109, end: 20140109
  3. HUMIRA [Suspect]
     Dates: start: 20140123
  4. CITALOPRAM [Concomitant]
     Indication: ANXIOLYTIC THERAPY
     Dosage: DAILY
  5. HYDROCHLOROTH [Concomitant]
     Indication: DIURETIC THERAPY
     Dosage: DAILY
  6. CARVEDILOL [Concomitant]
     Indication: BLOOD PRESSURE
  7. METFORMIN [Concomitant]
     Indication: DIABETES MELLITUS
  8. LORAZEPAM [Concomitant]
     Indication: PERSONALITY DISORDER
  9. VENTOLIN HFA [Concomitant]
     Indication: CHRONIC OBSTRUCTIVE PULMONARY DISEASE
  10. QUETIAPINE [Concomitant]
     Indication: BIPOLAR DISORDER
  11. SIMVASTATIN [Concomitant]
     Indication: BLOOD CHOLESTEROL INCREASED
     Dosage: DAILY
  12. HYDROXYZINE [Concomitant]
     Indication: PRURITUS
     Dosage: 1-2 TABS AT BEDTIME
  13. HUMULIN [Concomitant]
     Indication: DIABETES MELLITUS
     Dosage: AM
  14. HUMULIN [Concomitant]
     Dosage: AT NIGHT

REACTIONS (4)
  - Dacryostenosis acquired [Not Recovered/Not Resolved]
  - Cellulitis [Not Recovered/Not Resolved]
  - Psoriasis [Not Recovered/Not Resolved]
  - Pruritus generalised [Not Recovered/Not Resolved]
